FAERS Safety Report 7351794-7 (Version None)
Quarter: 2011Q1

REPORT INFORMATION
  Report Type: 
  Country: None (occurrence: None)
  Receive Date: 20110315
  Receipt Date: 20101223
  Transmission Date: 20110831
  Serious: Yes (Hospitalization, Other)
  Sender: FDA-Public Use
  Company Number: US-BAYER-200943254NA

PATIENT
  Sex: Female
  Weight: 62 kg

DRUGS (6)
  1. ZOLOFT [Concomitant]
     Dosage: 50 MG, QD
     Route: 048
  2. YAZ [Suspect]
     Indication: ACNE
  3. ANTI-DIABETICS [Concomitant]
     Route: 048
  4. SERTRALINE [Concomitant]
     Indication: ANXIETY
     Dosage: UNK
     Dates: start: 20060101, end: 20090101
  5. YAZ [Suspect]
     Indication: PREMENSTRUAL SYNDROME
     Dosage: UNK
     Route: 048
     Dates: start: 20060401, end: 20090318
  6. YASMIN [Suspect]
     Indication: PRODUCT USED FOR UNKNOWN INDICATION

REACTIONS (7)
  - SINUS TACHYCARDIA [None]
  - DYSPNOEA [None]
  - PULMONARY EMBOLISM [None]
  - CHEST PAIN [None]
  - PLEURISY [None]
  - PLEURITIC PAIN [None]
  - RESPIRATORY FAILURE [None]
